FAERS Safety Report 16826690 (Version 2)
Quarter: 2020Q3

REPORT INFORMATION
  Report Type: Spontaneous
  Country: PT (occurrence: PT)
  Receive Date: 20190919
  Receipt Date: 20200702
  Transmission Date: 20201102
  Serious: Yes (Other)
  Sender: FDA-Public Use
  Company Number: PT-MACLEODS PHARMACEUTICALS US LTD-MAC2019022979

PATIENT

DRUGS (3)
  1. OLANZAPINE 20 MG [Suspect]
     Active Substance: OLANZAPINE
     Indication: DELUSION
     Dosage: 20 MILLIGRAM, QD
     Route: 048
  2. ARIPIPRAZOLE. [Concomitant]
     Active Substance: ARIPIPRAZOLE
     Indication: DELUSION
     Dosage: 2.5 MILLIGRAM, QD
     Route: 065
  3. ARIPIPRAZOLE. [Concomitant]
     Active Substance: ARIPIPRAZOLE
     Dosage: 400 MILLIGRAM, INJECTABLE FORMULATION EVERY 4 WEEKS
     Route: 065

REACTIONS (2)
  - Impaired quality of life [Recovered/Resolved]
  - Hyperprolactinaemia [Recovered/Resolved]
